FAERS Safety Report 14599911 (Version 2)
Quarter: 2018Q4

REPORT INFORMATION
  Report Type: Spontaneous
  Country: JP (occurrence: JP)
  Receive Date: 20180305
  Receipt Date: 20181230
  Transmission Date: 20190204
  Serious: Yes (Hospitalization)
  Sender: FDA-Public Use
  Company Number: JP-NOVOPROD-586442

PATIENT
  Age: 47 Year
  Sex: Male
  Weight: 70.7 kg

DRUGS (7)
  1. XYZAL [Concomitant]
     Active Substance: LEVOCETIRIZINE DIHYDROCHLORIDE
  2. APIDRA [Suspect]
     Active Substance: INSULIN GLULISINE
     Indication: TYPE 1 DIABETES MELLITUS
     Dosage: 25 U, QD (10-6-9 UNITS PER DAY.)
     Route: 065
     Dates: start: 201610
  3. APIDRA [Suspect]
     Active Substance: INSULIN GLULISINE
     Dosage: DOSE ADJUSTED
     Route: 058
  4. NIFEDIPINE. [Concomitant]
     Active Substance: NIFEDIPINE
  5. TRESIBA CHU [Suspect]
     Active Substance: INSULIN DEGLUDEC
     Dosage: DOSE ADJUSTED
     Route: 058
  6. MICOMBI COMBINATION [Concomitant]
     Active Substance: HYDROCHLOROTHIAZIDE\TELMISARTAN
  7. TRESIBA CHU [Suspect]
     Active Substance: INSULIN DEGLUDEC
     Indication: TYPE 1 DIABETES MELLITUS
     Dosage: 20 U, QD
     Route: 058
     Dates: start: 201610, end: 20161122

REACTIONS (4)
  - Hypoglycaemia unawareness [Recovered/Resolved]
  - Anti-insulin antibody positive [Unknown]
  - Hypoglycaemia [Recovered/Resolved]
  - Dyskinesia [Recovered/Resolved]

NARRATIVE: CASE EVENT DATE: 201610
